FAERS Safety Report 7345642-9 (Version None)
Quarter: 2011Q1

REPORT INFORMATION
  Report Type: 
  Country: None (occurrence: None)
  Receive Date: 20110310
  Receipt Date: 20110303
  Transmission Date: 20110831
  Serious: Yes (Other)
  Sender: FDA-Public Use
  Company Number: A0917402A

PATIENT
  Age: 29 Year
  Sex: Female

DRUGS (2)
  1. TYKERB [Suspect]
     Indication: BREAST CANCER
     Dosage: 1250MG SEE DOSAGE TEXT
     Route: 065
     Dates: start: 20100501, end: 20110101
  2. XELODA [Suspect]
     Dosage: 2000MGM2 CYCLIC
     Route: 065
     Dates: start: 20100501, end: 20110101

REACTIONS (1)
  - SKIN TOXICITY [None]
